FAERS Safety Report 18649474 (Version 1)
Quarter: 2020Q4

REPORT INFORMATION
  Report Type: Spontaneous
  Country: US (occurrence: US)
  Receive Date: 20201222
  Receipt Date: 20201222
  Transmission Date: 20210114
  Serious: Yes (Other)
  Sender: FDA-Public Use
  Company Number: US-ASTRAZENECA-2020SF68119

PATIENT
  Age: 57 Year
  Sex: Female
  Weight: 74 kg

DRUGS (24)
  1. OMEPRAZOLE. [Suspect]
     Active Substance: OMEPRAZOLE
     Indication: GASTROOESOPHAGEAL REFLUX DISEASE
     Route: 048
  2. OMEPRAZOLE. [Suspect]
     Active Substance: OMEPRAZOLE
     Indication: DYSPEPSIA
     Route: 048
  3. EPIPEN [Suspect]
     Active Substance: EPINEPHRINE
     Route: 065
  4. PENICILLIN [Suspect]
     Active Substance: PENICILLIN
     Route: 065
  5. ESTRADIOL. [Concomitant]
     Active Substance: ESTRADIOL
  6. TIZANIDINE HCL [Concomitant]
     Active Substance: TIZANIDINE HYDROCHLORIDE
     Indication: MIGRAINE
  7. HYDROCHLOROTHIAZIDE. [Suspect]
     Active Substance: HYDROCHLOROTHIAZIDE
     Route: 065
  8. LABETALOL HYDROCHLORIDE. [Concomitant]
     Active Substance: LABETALOL HYDROCHLORIDE
     Indication: HYPERTENSION
  9. ONDANSETRON HCL [Concomitant]
     Active Substance: ONDANSETRON HYDROCHLORIDE
     Indication: NAUSEA
     Dosage: 8.0MG UNKNOWN
  10. ELDERBERRY SAMBUCUS [Concomitant]
     Dosage: 1250.0MG UNKNOWN
  11. AMLODIPINE BESILATE [Concomitant]
     Active Substance: AMLODIPINE BESYLATE
     Indication: HYPERTENSION
  12. CANNABIS [Concomitant]
     Active Substance: CANNABIS SATIVA SUBSP. INDICA TOP
  13. ZINC. [Concomitant]
     Active Substance: ZINC
     Dosage: 50.0MG UNKNOWN
  14. TOPAMAX [Suspect]
     Active Substance: TOPIRAMATE
     Route: 065
  15. VITAMIN D [Suspect]
     Active Substance: VITAMIN D NOS
     Route: 065
  16. ELAVIL [Suspect]
     Active Substance: AMITRIPTYLINE HYDROCHLORIDE
     Route: 065
  17. EPIPEN [Suspect]
     Active Substance: EPINEPHRINE
  18. DILANTIN [Suspect]
     Active Substance: PHENYTOIN
     Route: 065
  19. FLOVENT HFA [Concomitant]
     Active Substance: FLUTICASONE PROPIONATE
     Indication: ASTHMA
  20. CELECOX B [Concomitant]
     Indication: ARTHRITIS
  21. VENTOLIN HFA [Concomitant]
     Active Substance: ALBUTEROL SULFATE
     Indication: ASTHMA
  22. VITAMIN C [Concomitant]
     Active Substance: ASCORBIC ACID
  23. IMITREX [Suspect]
     Active Substance: SUMATRIPTAN SUCCINATE
     Route: 065
  24. ATORVASTATIN [Concomitant]
     Active Substance: ATORVASTATIN

REACTIONS (21)
  - Epstein-Barr virus infection [Unknown]
  - Hypersensitivity [Unknown]
  - Blood pressure abnormal [Unknown]
  - Clostridium difficile infection [Unknown]
  - Vitamin D decreased [Not Recovered/Not Resolved]
  - Infectious mononucleosis [Unknown]
  - Sitting disability [Unknown]
  - Asthenia [Unknown]
  - Haemorrhage [Unknown]
  - Pneumonia [Unknown]
  - Insomnia [Unknown]
  - Movement disorder [Unknown]
  - Rheumatoid arthritis [Unknown]
  - Pain [Unknown]
  - Contusion [Unknown]
  - Urticaria [Unknown]
  - Rash [Unknown]
  - Eye pain [Unknown]
  - Erythema [Unknown]
  - Facial paralysis [Unknown]
  - Motor dysfunction [Not Recovered/Not Resolved]

NARRATIVE: CASE EVENT DATE: 2012
